FAERS Safety Report 21455598 (Version 1)
Quarter: 2022Q4

REPORT INFORMATION
  Report Type: Spontaneous
  Country: US (occurrence: None)
  Receive Date: 20221014
  Receipt Date: 20221014
  Transmission Date: 20230113
  Serious: No
  Sender: FDA-Public Use
  Company Number: US-Hikma Pharmaceuticals USA Inc.-US-H14001-22-01086

PATIENT
  Age: 91 Year
  Sex: Female

DRUGS (1)
  1. MITIGARE [Suspect]
     Active Substance: COLCHICINE
     Indication: Product used for unknown indication
     Dosage: UNKNOWN
     Route: 065
     Dates: start: 20220416

REACTIONS (2)
  - Sneezing [Recovering/Resolving]
  - Rhinorrhoea [Not Recovered/Not Resolved]
